FAERS Safety Report 25286286 (Version 2)
Quarter: 2025Q2

REPORT INFORMATION
  Report Type: Spontaneous
  Country: US (occurrence: US)
  Receive Date: 20250509
  Receipt Date: 20250514
  Transmission Date: 20250716
  Serious: No
  Sender: TAKEDA
  Company Number: US-TAKEDA-2025TUS043878

PATIENT
  Sex: Female
  Weight: 55 kg

DRUGS (4)
  1. MOTEGRITY [Suspect]
     Active Substance: PRUCALOPRIDE SUCCINATE
     Indication: Irritable bowel syndrome
     Dosage: 2 MILLIGRAM, QD
  2. MOTEGRITY [Suspect]
     Active Substance: PRUCALOPRIDE SUCCINATE
     Indication: Mobility decreased
  3. PRUCALOPRIDE [Suspect]
     Active Substance: PRUCALOPRIDE
     Indication: Irritable bowel syndrome
  4. PRUCALOPRIDE [Suspect]
     Active Substance: PRUCALOPRIDE
     Indication: Mobility decreased

REACTIONS (4)
  - Reaction to excipient [Unknown]
  - Insurance issue [Unknown]
  - Inability to afford medication [Unknown]
  - Nausea [Unknown]
